FAERS Safety Report 23276598 (Version 1)
Quarter: 2023Q4

REPORT INFORMATION
  Report Type: Spontaneous
  Country: CN (occurrence: CN)
  Receive Date: 20231208
  Receipt Date: 20231208
  Transmission Date: 20240110
  Serious: Yes (Other)
  Sender: FDA-Public Use
  Company Number: CN-PFIZER INC-PV202300198606

PATIENT
  Age: 5 Year
  Sex: Male
  Weight: 17 kg

DRUGS (2)
  1. METHOTREXATE SODIUM [Suspect]
     Active Substance: METHOTREXATE SODIUM
     Indication: Chemotherapy
     Dosage: 400 MG, 1X/DAY
     Route: 041
     Dates: start: 20231030, end: 20231030
  2. METHOTREXATE SODIUM [Suspect]
     Active Substance: METHOTREXATE SODIUM
     Dosage: 3500 MG, 1X/DAY
     Route: 041
     Dates: start: 20231030, end: 20231030

REACTIONS (3)
  - Cough [Recovering/Resolving]
  - Rash [Recovering/Resolving]
  - Swelling face [Recovering/Resolving]

NARRATIVE: CASE EVENT DATE: 20231030
